FAERS Safety Report 6335082-3 (Version None)
Quarter: 2009Q3

REPORT INFORMATION
  Report Type: 
  Country: None (occurrence: None)
  Receive Date: 20090831
  Receipt Date: 20090825
  Transmission Date: 20100115
  Serious: Yes (Other)
  Sender: FDA-Public Use
  Company Number: B0589577A

PATIENT
  Sex: Male
  Weight: 16 kg

DRUGS (43)
  1. ARRANON [Suspect]
     Indication: MYCOSIS FUNGOIDES
     Dosage: 650MGM2 PER DAY
     Route: 042
     Dates: start: 20080205, end: 20080209
  2. ARRANON [Suspect]
     Dosage: 650MGM2 PER DAY
     Route: 042
     Dates: start: 20080318, end: 20080322
  3. CYLOCIDE [Suspect]
     Indication: NEOPLASM MALIGNANT
     Dates: start: 20080212, end: 20080215
  4. CYLOCIDE [Suspect]
     Dates: start: 20080219, end: 20080222
  5. CYLOCIDE [Suspect]
     Dates: start: 20080325, end: 20080328
  6. CYLOCIDE [Suspect]
     Dates: start: 20080401, end: 20080404
  7. ENDOXAN [Suspect]
     Indication: NEOPLASM MALIGNANT
     Dates: start: 20080212, end: 20080212
  8. ENDOXAN [Suspect]
     Dates: start: 20080325, end: 20080325
  9. ONCOVIN [Suspect]
     Indication: NEOPLASM MALIGNANT
     Route: 042
     Dates: start: 20080226, end: 20080226
  10. ONCOVIN [Suspect]
     Route: 042
     Dates: start: 20080304, end: 20080304
  11. ONCOVIN [Suspect]
     Route: 042
     Dates: start: 20080408, end: 20080408
  12. LEUNASE [Suspect]
     Indication: NEOPLASM MALIGNANT
     Route: 042
     Dates: start: 20080226, end: 20080226
  13. LEUNASE [Suspect]
     Route: 042
     Dates: start: 20080408, end: 20080408
  14. LEUKERIN [Suspect]
     Indication: NEOPLASM MALIGNANT
     Route: 048
     Dates: start: 20080212, end: 20080225
  15. LEUKERIN [Suspect]
     Route: 048
     Dates: start: 20080325, end: 20080407
  16. ELSPAR [Suspect]
     Indication: DRUG USE FOR UNKNOWN INDICATION
  17. TAMIFLU [Concomitant]
     Route: 048
     Dates: start: 20080212, end: 20080221
  18. ATARAX [Concomitant]
     Indication: PRURITUS
     Route: 048
     Dates: start: 20080213
  19. BAKTAR [Concomitant]
     Indication: INFECTION PROPHYLAXIS
     Route: 048
     Dates: start: 20080229, end: 20080316
  20. BAKTAR [Concomitant]
     Route: 048
     Dates: start: 20080402
  21. FUNGIZONE [Concomitant]
     Indication: INFECTION PROPHYLAXIS
     Route: 048
     Dates: start: 20080229, end: 20080316
  22. FUNGIZONE [Concomitant]
     Route: 048
     Dates: start: 20080402
  23. LAXOBERON [Concomitant]
     Indication: CONSTIPATION
     Route: 048
     Dates: start: 20080329
  24. HIRUDOID [Concomitant]
     Indication: RASH
     Route: 061
     Dates: start: 20080404
  25. KYTRIL [Concomitant]
     Indication: PROPHYLAXIS OF NAUSEA AND VOMITING
     Route: 042
     Dates: start: 20080205, end: 20080209
  26. KYTRIL [Concomitant]
     Route: 042
     Dates: start: 20080212, end: 20080215
  27. KYTRIL [Concomitant]
     Route: 042
     Dates: start: 20080219, end: 20080222
  28. KYTRIL [Concomitant]
     Route: 042
     Dates: start: 20080226, end: 20080226
  29. KYTRIL [Concomitant]
     Route: 042
     Dates: start: 20080304, end: 20080304
  30. KYTRIL [Concomitant]
     Route: 042
     Dates: start: 20080318, end: 20080322
  31. KYTRIL [Concomitant]
     Route: 042
     Dates: start: 20080325, end: 20080328
  32. KYTRIL [Concomitant]
     Route: 042
     Dates: start: 20080401, end: 20080404
  33. KYTRIL [Concomitant]
     Route: 042
     Dates: start: 20080402, end: 20080402
  34. UROMITEXAN [Concomitant]
     Indication: PROPHYLAXIS
     Route: 042
     Dates: start: 20080212, end: 20080212
  35. UROMITEXAN [Concomitant]
     Route: 042
     Dates: start: 20080325, end: 20080325
  36. PREDONINE [Concomitant]
     Indication: MYCOSIS FUNGOIDES
     Dates: start: 20080221, end: 20080227
  37. PREDONINE [Concomitant]
     Dates: start: 20080403
  38. MODACIN [Concomitant]
     Route: 065
     Dates: start: 20080220, end: 20080225
  39. MODACIN [Concomitant]
     Route: 065
     Dates: start: 20080229, end: 20080310
  40. ACETAMINOPHEN [Concomitant]
     Route: 048
     Dates: start: 20080301, end: 20080301
  41. AZUNOL [Concomitant]
     Route: 065
     Dates: start: 20080321
  42. AFTACH [Concomitant]
     Route: 061
     Dates: start: 20080327
  43. NEUTROGIN [Concomitant]
     Dates: start: 20080307, end: 20080314

REACTIONS (12)
  - ALANINE AMINOTRANSFERASE INCREASED [None]
  - ASPARTATE AMINOTRANSFERASE INCREASED [None]
  - ASTHENIA [None]
  - FEBRILE NEUTROPENIA [None]
  - HAEMOGLOBIN DECREASED [None]
  - HEADACHE [None]
  - NEUTROPHIL COUNT DECREASED [None]
  - OROPHARYNGEAL PAIN [None]
  - PHARYNGITIS [None]
  - PYREXIA [None]
  - STOMATITIS [None]
  - WHITE BLOOD CELL COUNT DECREASED [None]
